FAERS Safety Report 8527167 (Version 2)
Quarter: 2013Q1

REPORT INFORMATION
  Report Type: Spontaneous
  Country: FR (occurrence: FR)
  Receive Date: 20120424
  Receipt Date: 20130221
  Transmission Date: 20140127
  Serious: Yes (Hospitalization, Other)
  Sender: FDA-Public Use
  Company Number: PHHY2012FR033691

PATIENT
  Age: 76 Year
  Sex: Male

DRUGS (1)
  1. TASIGNA [Suspect]
     Dosage: 200 UNK, UNK
     Dates: start: 200804, end: 20110808

REACTIONS (10)
  - Arterial disorder [Recovered/Resolved with Sequelae]
  - Areflexia [Unknown]
  - Hyporeflexia [Unknown]
  - Arteritis [Unknown]
  - Axonal neuropathy [Unknown]
  - Hypoaesthesia [Unknown]
  - Neuropathy peripheral [Unknown]
  - Pain in extremity [Unknown]
  - Arterial occlusive disease [Unknown]
  - Muscle spasms [Unknown]
